FAERS Safety Report 4536974-8 (Version None)
Quarter: 2004Q4

REPORT INFORMATION
  Report Type: 
  Country: None (occurrence: None)
  Receive Date: 20041220
  Receipt Date: 20041118
  Transmission Date: 20050328
  Serious: Yes (Life-Threatening)
  Sender: FDA-Public Use
  Company Number: A04200401111

PATIENT
  Age: 53 Year
  Sex: Female

DRUGS (6)
  1. ELOXATIN [Suspect]
     Indication: COLON CANCER
     Dosage: 35.35 MG/M2, OTHER, INTRAVENOUS DRIP; A FEW HOURS
     Route: 041
     Dates: start: 20041025, end: 20041025
  2. ELOXATIN [Suspect]
     Indication: METASTASES TO LIVER
     Dosage: 35.35 MG/M2, OTHER, INTRAVENOUS DRIP; A FEW HOURS
     Route: 041
     Dates: start: 20041025, end: 20041025
  3. 5-FLUORURACIL (FLUOROURACIL) [Concomitant]
  4. LEUCOVORIN CALCIUM [Concomitant]
  5. DEXAMETHASONE [Concomitant]
  6. KEVATRIL (GRANISETRON HYDROCHLORIDE) [Concomitant]

REACTIONS (5)
  - CHILLS [None]
  - HAEMOLYSIS [None]
  - HAEMOLYTIC ANAEMIA [None]
  - JAUNDICE [None]
  - RENAL FAILURE ACUTE [None]
